FAERS Safety Report 8027611 (Version 5)
Quarter: 2014Q1

REPORT INFORMATION
  Report Type: Spontaneous
  Country: US (occurrence: US)
  Receive Date: 20110711
  Receipt Date: 20140107
  Transmission Date: 20141002
  Serious: Yes (Hospitalization, Disabling)
  Sender: FDA-Public Use
  Company Number: US-BAYER-2011-058330

PATIENT
  Age: 40 Year
  Sex: Female
  Weight: 52 kg

DRUGS (7)
  1. YAZ [Suspect]
     Indication: PREMENSTRUAL SYNDROME
     Dosage: UNK
     Dates: start: 2002, end: 201009
  2. YASMIN [Suspect]
     Indication: PREMENSTRUAL SYNDROME
     Dosage: UNK
     Dates: start: 2002, end: 201009
  3. GIANVI [Suspect]
  4. TOPAMAX [Concomitant]
     Indication: MIGRAINE
     Dosage: UNK
     Dates: start: 2006
  5. LEXAPRO [Concomitant]
     Indication: DEPRESSION
     Dosage: UNK
  6. RANITIDINE [Concomitant]
     Indication: GASTROOESOPHAGEAL REFLUX DISEASE
     Dosage: UNK
     Dates: start: 20090126, end: 20100716
  7. EXCEDRIN [CAFFEINE,PARACETAMOL] [Concomitant]
     Indication: MIGRAINE
     Dosage: AS NEEDED

REACTIONS (9)
  - Gallbladder disorder [None]
  - Cholecystitis chronic [None]
  - Bile duct stone [None]
  - Injury [None]
  - Pain [None]
  - Anxiety [None]
  - Gastrointestinal disorder [None]
  - Anhedonia [None]
  - Abdominal pain [None]
